FAERS Safety Report 10151348 (Version 1)
Quarter: 2014Q2

REPORT INFORMATION
  Report Type: Spontaneous
  Country: US (occurrence: US)
  Receive Date: 20140502
  Receipt Date: 20140502
  Transmission Date: 20141212
  Serious: No
  Sender: FDA-Public Use
  Company Number: US-ASTRAZENECA-2013SE62377

PATIENT
  Sex: Female

DRUGS (1)
  1. PRILOSEC OTC [Suspect]
     Route: 048
     Dates: start: 20130730, end: 20130730

REACTIONS (7)
  - Toothache [Recovered/Resolved]
  - Joint stiffness [Recovered/Resolved]
  - Dysphagia [Recovered/Resolved]
  - Pain in jaw [Recovered/Resolved]
  - Discomfort [Recovered/Resolved]
  - Back pain [Recovered/Resolved]
  - Musculoskeletal chest pain [Recovered/Resolved]
